FAERS Safety Report 8116603-7 (Version None)
Quarter: 2012Q1

REPORT INFORMATION
  Report Type: 
  Country: None (occurrence: None)
  Receive Date: 20120206
  Receipt Date: 20120124
  Transmission Date: 20120608
  Serious: Yes (Hospitalization)
  Sender: FDA-Public Use
  Company Number: PHHY2012AU006062

PATIENT
  Sex: Female

DRUGS (2)
  1. CLOZARIL [Suspect]
     Dates: start: 20120123
  2. CLOZARIL [Suspect]
     Dosage: 12.5 MG
     Dates: start: 20000504

REACTIONS (1)
  - PSYCHOTIC DISORDER [None]
